FAERS Safety Report 12170671 (Version 2)
Quarter: 2016Q2

REPORT INFORMATION
  Report Type: Spontaneous
  Country: IT (occurrence: IT)
  Receive Date: 20160311
  Receipt Date: 20160401
  Transmission Date: 20160815
  Serious: Yes (Hospitalization)
  Sender: FDA-Public Use
  Company Number: IT-SUN PHARMACEUTICAL INDUSTRIES LTD-2016RR-112995

PATIENT

DRUGS (2)
  1. LORAZEPAM. [Suspect]
     Active Substance: LORAZEPAM
     Indication: ANXIETY
     Dosage: 20 MG TOTAL
     Route: 048
     Dates: start: 20151112, end: 20151112
  2. DELORAZEPAM [Suspect]
     Active Substance: DELORAZEPAM
     Indication: ANXIETY
     Dosage: 40 MG TOTAL
     Route: 048
     Dates: start: 20151112, end: 20151112

REACTIONS (4)
  - Sopor [Recovering/Resolving]
  - Psychomotor retardation [Recovering/Resolving]
  - Overdose [Recovering/Resolving]
  - Intentional self-injury [Recovering/Resolving]

NARRATIVE: CASE EVENT DATE: 20151112
